FAERS Safety Report 18618099 (Version 1)
Quarter: 2020Q4

REPORT INFORMATION
  Report Type: Spontaneous
  Country: US (occurrence: US)
  Receive Date: 20201215
  Receipt Date: 20201215
  Transmission Date: 20210114
  Serious: Yes (Other)
  Sender: FDA-Public Use
  Company Number: US-COOPERSURGICAL, INC.-US-2020CPS003090

PATIENT
  Age: 21 Year
  Sex: Female
  Weight: 87.98 kg

DRUGS (2)
  1. PARAGARD T 380A [Suspect]
     Active Substance: COPPER
     Indication: CONTRACEPTION
     Dosage: UNK
     Route: 015
     Dates: start: 20201105, end: 20201123
  2. PARAGARD T 380A [Suspect]
     Active Substance: COPPER
     Dosage: UNK
     Route: 015
     Dates: start: 20201123

REACTIONS (6)
  - Discomfort [Unknown]
  - Device expulsion [Recovered/Resolved]
  - Ectropion of cervix [Unknown]
  - Complication associated with device [Recovered/Resolved]
  - Dysfunctional uterine bleeding [Unknown]
  - Sensation of foreign body [Recovered/Resolved]

NARRATIVE: CASE EVENT DATE: 202011
